FAERS Safety Report 4748463-6 (Version None)
Quarter: 2005Q3

REPORT INFORMATION
  Report Type: 
  Country: None (occurrence: None)
  Receive Date: 20050818
  Receipt Date: 20050801
  Transmission Date: 20060218
  Serious: Yes (Life-Threatening, Hospitalization)
  Sender: FDA-Public Use
  Company Number: 216884

PATIENT
  Age: 78 Year
  Sex: 0

DRUGS (2)
  1. AVASTIN [Suspect]
     Indication: BREAST CANCER
     Dosage: 10 MG/KG, 2 PER Q28D, INTRAVENOUS
     Route: 042
     Dates: start: 20030826
  2. PACLITAXEL [Suspect]
     Indication: BREAST CANCER
     Dosage: 90 MG/M2, 3 PER Q28D, INTRAVENOUS
     Route: 042
     Dates: start: 20030826

REACTIONS (4)
  - EMBOLISM [None]
  - HYPOKALAEMIA [None]
  - THROMBOSIS [None]
  - URINARY TRACT INFECTION [None]
